FAERS Safety Report 13322786 (Version 2)
Quarter: 2017Q2

REPORT INFORMATION
  Report Type: Spontaneous
  Country: US (occurrence: US)
  Receive Date: 20170310
  Receipt Date: 20170426
  Transmission Date: 20170830
  Serious: Yes (Hospitalization)
  Sender: FDA-Public Use
  Company Number: US-UCBSA-2017009044

PATIENT
  Age: 91 Year
  Sex: Female
  Weight: 57 kg

DRUGS (12)
  1. LEVOTHYROXINE. [Concomitant]
     Active Substance: LEVOTHYROXINE
     Indication: PRODUCT USED FOR UNKNOWN INDICATION
     Dosage: 25 ?G, ONCE DAILY (QD) (STARTED 8 YEARS AGO)
  2. GABAPENTIN. [Concomitant]
     Active Substance: GABAPENTIN
     Indication: PRODUCT USED FOR UNKNOWN INDICATION
     Dosage: 300 MG, 4X/DAY (QID) (STARTED 8 YEARS AGO)
  3. AMLODIPINE [Concomitant]
     Active Substance: AMLODIPINE BESYLATE
     Indication: PRODUCT USED FOR UNKNOWN INDICATION
     Dosage: 2.5 MG, ONCE DAILY (QD) (STARTED 8 YEARS AGO)
  4. OMEPRAZOLE. [Concomitant]
     Active Substance: OMEPRAZOLE
     Indication: PRODUCT USED FOR UNKNOWN INDICATION
     Dosage: 20 MG, ONCE DAILY (QD) (STARTED 8 YEARS AGO)
  5. ROPINIROLE. [Concomitant]
     Active Substance: ROPINIROLE
     Indication: PRODUCT USED FOR UNKNOWN INDICATION
     Dosage: 1 MG, 4X/DAY (QID) (STARTED 8 YEARS AGO)
  6. METFORMIN [Concomitant]
     Active Substance: METFORMIN HYDROCHLORIDE
     Indication: PRODUCT USED FOR UNKNOWN INDICATION
     Dosage: 500 MG, ONCE DAILY (QD) (STARTED 8 YEARS AGO)
  7. NEUPRO [Suspect]
     Active Substance: ROTIGOTINE
     Indication: RESTLESS LEGS SYNDROME
     Dosage: 4 MG, ONCE DAILY (QD) IN THE MORNING
     Route: 062
     Dates: start: 20170224, end: 20170302
  8. ALENDRONATE [Concomitant]
     Active Substance: ALENDRONATE SODIUM
     Indication: PRODUCT USED FOR UNKNOWN INDICATION
     Dosage: 70 MG, EV 3 MONTHS (STARTED 8 YEARS AGO)
  9. CARBIDOPA AND LEVODOPA [Concomitant]
     Active Substance: CARBIDOPA\LEVODOPA
     Indication: PRODUCT USED FOR UNKNOWN INDICATION
     Dosage: 25 MG, 4X/DAY (QID) (STARTED 8 YEARS AGO)
  10. NEUPRO [Suspect]
     Active Substance: ROTIGOTINE
     Indication: NEUROPATHY PERIPHERAL
  11. ENALAPRIL [Concomitant]
     Active Substance: ENALAPRIL
     Indication: PRODUCT USED FOR UNKNOWN INDICATION
     Dosage: 5 MG, ONCE DAILY (QD) (STARTED 8 YEARS AGO)
  12. MECLIZINE [Concomitant]
     Active Substance: MECLIZINE HYDROCHLORIDE
     Indication: VERTIGO
     Dosage: 25 MG, AS NEEDED (PRN) (STARTED 8 YEARS AGO)

REACTIONS (8)
  - Dysphagia [Recovered/Resolved]
  - Hypophagia [Unknown]
  - Blood pressure increased [Unknown]
  - Intentional product misuse [Unknown]
  - Pain [Unknown]
  - Wheezing [Unknown]
  - Swollen tongue [Recovered/Resolved with Sequelae]
  - Mouth swelling [Recovered/Resolved]

NARRATIVE: CASE EVENT DATE: 2017
